FAERS Safety Report 8590012-9 (Version None)
Quarter: 2012Q3

REPORT INFORMATION
  Report Type: 
  Country: None (occurrence: None)
  Receive Date: 20120813
  Receipt Date: 20120803
  Transmission Date: 20120928
  Serious: Yes (Hospitalization)
  Sender: FDA-Public Use
  Company Number: US-ASTRAZENECA-2012SE27875

PATIENT
  Age: 22085 Day
  Sex: Female
  Weight: 54.5 kg

DRUGS (9)
  1. TRAZODONE HYDROCHLORIDE [Concomitant]
     Dosage: 300 MG
     Dates: start: 20110119
  2. ESCITALOPRAM [Concomitant]
     Dates: start: 20020101, end: 20110417
  3. MORPHINE SULFATE [Concomitant]
     Dates: start: 20110128
  4. SEROQUEL [Suspect]
     Dosage: 300 MG
     Route: 048
     Dates: start: 20030312, end: 20110920
  5. RESTORIL [Suspect]
     Dosage: 60 MG
     Route: 065
     Dates: start: 20000927, end: 20110419
  6. ALPRAZOLAM [Suspect]
     Route: 065
     Dates: start: 20040922
  7. SOMA [Suspect]
     Dosage: 700 MG
     Route: 065
     Dates: start: 20031201
  8. MIDAZOLAM [Suspect]
     Route: 065
  9. GABAPENTIN [Concomitant]
     Dates: start: 20011114

REACTIONS (2)
  - TOXIC ENCEPHALOPATHY [None]
  - ACCIDENTAL OVERDOSE [None]
